FAERS Safety Report 21559921 (Version 1)
Quarter: 2022Q4

REPORT INFORMATION
  Report Type: Spontaneous
  Country: BR (occurrence: BR)
  Receive Date: 20221107
  Receipt Date: 20221107
  Transmission Date: 20230112
  Serious: Yes (Hospitalization)
  Sender: FDA-Public Use
  Company Number: BR-SAMSUNG BIOEPIS-SB-2022-28248

PATIENT

DRUGS (1)
  1. TRASTUZUMAB [Suspect]
     Active Substance: TRASTUZUMAB
     Indication: Breast cancer female
     Dosage: UNKNOWN
     Route: 064

REACTIONS (2)
  - Jaundice [Unknown]
  - Foetal exposure during pregnancy [Unknown]
